FAERS Safety Report 5641523-7 (Version None)
Quarter: 2008Q1

REPORT INFORMATION
  Report Type: 
  Country: None (occurrence: None)
  Receive Date: 20080227
  Receipt Date: 20071017
  Transmission Date: 20080703
  Serious: No
  Sender: FDA-Public Use
  Company Number: A0688223A

PATIENT
  Age: 72 Year
  Sex: Female

DRUGS (3)
  1. NICORETTE [Suspect]
  2. NICORETTE (MINT) [Suspect]
  3. NICORETTE (MINT) [Suspect]

REACTIONS (4)
  - GLOSSODYNIA [None]
  - INTENTIONAL DRUG MISUSE [None]
  - ORAL DISCOMFORT [None]
  - ORAL PAIN [None]
